FAERS Safety Report 15666065 (Version 4)
Quarter: 2019Q3

REPORT INFORMATION
  Report Type: Report from Study
  Country: FI (occurrence: FI)
  Receive Date: 20181128
  Receipt Date: 20190822
  Transmission Date: 20191004
  Serious: Yes (Hospitalization)
  Sender: FDA-Public Use
  Company Number: FI-MYLANLABS-2018M1087714

PATIENT
  Sex: Male

DRUGS (63)
  1. LEPONEX [Suspect]
     Active Substance: CLOZAPINE
     Dosage: 25 MILLIGRAM, QD
     Dates: start: 20180131, end: 20180227
  2. ABILIFY MAINTENA [Concomitant]
     Active Substance: ARIPIPRAZOLE
     Indication: PRODUCT USED FOR UNKNOWN INDICATION
     Dosage: UNK, 4XW
     Dates: start: 20180515
  3. LITO [Concomitant]
     Active Substance: LITHIUM CARBONATE
     Dosage: 600 MILLIGRAM, QD
     Dates: start: 20170712
  4. LEPONEX [Suspect]
     Active Substance: CLOZAPINE
     Dosage: 400 MILLIGRAM, QD
     Dates: start: 20160619, end: 20170707
  5. LEPONEX [Suspect]
     Active Substance: CLOZAPINE
     Dosage: 250 MILLIGRAM, QD
     Dates: start: 2018, end: 2018
  6. LEPONEX [Suspect]
     Active Substance: CLOZAPINE
     Dosage: 50 MILLIGRAM, QD
     Dates: start: 20180125, end: 20180130
  7. LEPONEX [Suspect]
     Active Substance: CLOZAPINE
     Dosage: 50 MILLIGRAM, QD
     Dates: start: 201804
  8. LEPONEX [Suspect]
     Active Substance: CLOZAPINE
     Dosage: 100 MILLIGRAM, QD
     Dates: start: 2018, end: 20180607
  9. ABILIFY [Concomitant]
     Active Substance: ARIPIPRAZOLE
     Dosage: 15 MILLIGRAM, QD
     Dates: start: 20170731
  10. ABILIFY [Concomitant]
     Active Substance: ARIPIPRAZOLE
     Dosage: 60 MILLIGRAM, QD
     Dates: start: 20171019, end: 20171116
  11. STELLA                             /00914902/ [Concomitant]
     Indication: PRODUCT USED FOR UNKNOWN INDICATION
     Dosage: UNK, PM
     Dates: start: 2012
  12. ATARAX [Concomitant]
     Active Substance: HYDROXYZINE HYDROCHLORIDE
     Dosage: 100 MILLIGRAM, QD
     Dates: start: 20170728, end: 20170902
  13. KETIPINOR [Concomitant]
     Active Substance: QUETIAPINE FUMARATE
     Dosage: UNK, TID (ADDITIONALLY, 25 MG)
     Dates: start: 201410
  14. LEVOZIN                            /00038602/ [Concomitant]
     Active Substance: LEVOMEPROMAZINE MALEATE
     Indication: PRODUCT USED FOR UNKNOWN INDICATION
     Dosage: 50 MILLIGRAM
     Dates: start: 20170915
  15. LEVOZIN                            /00038602/ [Concomitant]
     Active Substance: LEVOMEPROMAZINE MALEATE
     Dosage: 50 MILLIGRAM (DECREASED FROM 100 MG TO 50 MG)
     Dates: start: 20171114, end: 20171204
  16. LEPONEX [Suspect]
     Active Substance: CLOZAPINE
     Dosage: 25 MILLIGRAM, PM
     Dates: end: 20171204
  17. LEPONEX [Suspect]
     Active Substance: CLOZAPINE
     Dosage: 150 MILLIGRAM, QD
     Dates: start: 2018
  18. ATARAX [Concomitant]
     Active Substance: HYDROXYZINE HYDROCHLORIDE
     Indication: INSOMNIA
     Dosage: UNK, PRN
     Dates: start: 201409
  19. KETIPINOR [Concomitant]
     Active Substance: QUETIAPINE FUMARATE
     Indication: ANXIETY
     Dosage: 50 MILLIGRAM, PM (50 MG, CAN BE INCREASED TO 100 MG)
     Dates: start: 201410
  20. LAMICTAL [Concomitant]
     Active Substance: LAMOTRIGINE
     Dosage: 100 MILLIGRAM
     Dates: start: 201609, end: 2016
  21. MELATONIN [Concomitant]
     Active Substance: MELATONIN
     Dosage: UNK, PRN (5 MG UP TO 10 MG)
     Dates: start: 20170902, end: 20170902
  22. STILNOCT [Concomitant]
     Active Substance: ZOLPIDEM TARTRATE
     Indication: PRODUCT USED FOR UNKNOWN INDICATION
     Dosage: 10 MILLIGRAM
  23. LEPONEX [Suspect]
     Active Substance: CLOZAPINE
     Dosage: 550 MILLIGRAM, QD
     Dates: start: 201303, end: 201403
  24. LEPONEX [Suspect]
     Active Substance: CLOZAPINE
     Dosage: 400 MILLIGRAM, QD
     Dates: start: 20170711, end: 20170712
  25. LEPONEX [Suspect]
     Active Substance: CLOZAPINE
     Dosage: 100 MILLIGRAM, QD
     Dates: start: 20170714, end: 20170715
  26. LEPONEX [Suspect]
     Active Substance: CLOZAPINE
     Dosage: 150 MILLIGRAM, QD
     Dates: start: 20180628, end: 20190115
  27. ATARAX [Concomitant]
     Active Substance: HYDROXYZINE HYDROCHLORIDE
     Dosage: UNK UNK, QD (25 MG AS NEEDED UP TO 100 MG)
     Dates: start: 20170902
  28. MIRTAZAPINE. [Concomitant]
     Active Substance: MIRTAZAPINE
     Indication: SLEEP DISORDER
     Dosage: 15 MILLIGRAM
     Dates: start: 20170915, end: 2017
  29. NIACIN. [Concomitant]
     Active Substance: NIACIN
     Indication: PRODUCT USED FOR UNKNOWN INDICATION
     Dosage: 1500 MILLIGRAM
     Dates: start: 201712
  30. INFLUENZA VACCINE [Concomitant]
     Active Substance: INFLUENZA VIRUS VACCINE
     Indication: PRODUCT USED FOR UNKNOWN INDICATION
     Dosage: UNK
     Dates: start: 20181220, end: 20181220
  31. LITO [Concomitant]
     Active Substance: LITHIUM CARBONATE
     Indication: PRODUCT USED FOR UNKNOWN INDICATION
     Dosage: 300 MILLIGRAM, QD
     Dates: start: 20170619
  32. LEPONEX [Suspect]
     Active Substance: CLOZAPINE
     Dosage: 500 MILLIGRAM, QD
     Dates: start: 201611
  33. LEPONEX [Suspect]
     Active Substance: CLOZAPINE
     Dosage: 400 MILLIGRAM, QD
     Dates: start: 20161221
  34. LEPONEX [Suspect]
     Active Substance: CLOZAPINE
     Dosage: 100 MILLIGRAM, QD
     Dates: start: 20170716, end: 20170717
  35. LEPONEX [Suspect]
     Active Substance: CLOZAPINE
     Dosage: 50 MILLIGRAM, QD
     Dates: start: 2019
  36. ABILIFY [Concomitant]
     Active Substance: ARIPIPRAZOLE
     Dosage: 30 MILLIGRAM, QD
     Dates: start: 2018
  37. ATARAX [Concomitant]
     Active Substance: HYDROXYZINE HYDROCHLORIDE
     Dosage: 25 MILLIGRAM, QD
     Dates: start: 20170720, end: 20170728
  38. LAMICTAL [Concomitant]
     Active Substance: LAMOTRIGINE
     Indication: PRODUCT USED FOR UNKNOWN INDICATION
     Dosage: UNK
  39. ZYPREXA [Concomitant]
     Active Substance: OLANZAPINE
     Indication: PRODUCT USED FOR UNKNOWN INDICATION
     Dosage: 10 MILLIGRAM, PM
     Dates: start: 20170724, end: 20170728
  40. LEVOZIN                            /00038602/ [Concomitant]
     Active Substance: LEVOMEPROMAZINE MALEATE
     Dosage: UNK (AS NEEDED,INFREQUENTLY: 25 MG APPROXIMATELY 1-2 TIMES A WEEK, MAXIMUM 25 MG PER DAY)
  41. LEPONEX [Suspect]
     Active Substance: CLOZAPINE
     Dosage: UNK
     Dates: end: 201801
  42. LEPONEX [Suspect]
     Active Substance: CLOZAPINE
     Dosage: 75 MILLIGRAM, QD
     Dates: start: 20180227, end: 20180306
  43. LEPONEX [Suspect]
     Active Substance: CLOZAPINE
     Dosage: 125 MILLIGRAM, QD
     Dates: start: 20180607, end: 20180628
  44. ABILIFY [Concomitant]
     Active Substance: ARIPIPRAZOLE
     Indication: PRODUCT USED FOR UNKNOWN INDICATION
     Dosage: 30 MILLIGRAM, QD
     Dates: start: 2012
  45. ABILIFY [Concomitant]
     Active Substance: ARIPIPRAZOLE
     Dosage: 30 MILLIGRAM, QD
     Dates: start: 20170906, end: 20170915
  46. ABILIFY [Concomitant]
     Active Substance: ARIPIPRAZOLE
     Dosage: 45 MILLIGRAM, QD
     Dates: start: 20170915, end: 20171019
  47. OXAMIN [Concomitant]
     Active Substance: OXAZEPAM
     Indication: ANXIETY
     Dosage: 15 MILLIGRAM, PRN
     Dates: start: 2012
  48. SUBOXONE [Concomitant]
     Active Substance: BUPRENORPHINE HYDROCHLORIDE\NALOXONE HYDROCHLORIDE
     Indication: PRODUCT USED FOR UNKNOWN INDICATION
     Dosage: 2 DOSAGE FORM, QD
  49. ZYPREXA [Concomitant]
     Active Substance: OLANZAPINE
     Dosage: 7.5 MILLIGRAM, PM
     Dates: start: 20190201, end: 20190205
  50. TENOX                              /00393701/ [Concomitant]
     Active Substance: TEMAZEPAM
     Indication: PRODUCT USED FOR UNKNOWN INDICATION
     Dosage: UNK
     Dates: start: 20170724
  51. LEPONEX [Suspect]
     Active Substance: CLOZAPINE
     Dosage: 400 MILLIGRAM, QD
     Dates: start: 201403, end: 201603
  52. LEPONEX [Suspect]
     Active Substance: CLOZAPINE
     Dosage: 300 MILLIGRAM, QD
     Dates: start: 20170707, end: 20170710
  53. LEPONEX [Suspect]
     Active Substance: CLOZAPINE
     Dosage: 25 MILLIGRAM, QD
     Dates: start: 20171205, end: 20180125
  54. OXAMIN [Concomitant]
     Active Substance: OXAZEPAM
     Dosage: UNK UNK, QD
     Dates: start: 201310
  55. MELATONIN [Concomitant]
     Active Substance: MELATONIN
     Indication: PRODUCT USED FOR UNKNOWN INDICATION
     Dosage: UNK, PRN
     Dates: start: 20170724, end: 20170902
  56. TENOX                              /00393701/ [Concomitant]
     Active Substance: TEMAZEPAM
     Dosage: UNK (10-20MG TEMPORARILY)
     Dates: start: 20190205
  57. LITO [Concomitant]
     Active Substance: LITHIUM CARBONATE
     Dosage: 600 MILLIGRAM, QD
     Dates: start: 20170731, end: 20170915
  58. LEPONEX [Suspect]
     Active Substance: CLOZAPINE
     Indication: SCHIZOPHRENIA
     Dosage: 500 MILLIGRAM, QD
     Dates: start: 2012, end: 201303
  59. LEPONEX [Suspect]
     Active Substance: CLOZAPINE
     Dosage: 100 MILLIGRAM, QD
     Dates: start: 20180306, end: 201804
  60. LEPONEX [Suspect]
     Active Substance: CLOZAPINE
     Dosage: 75 MILLIGRAM, QD
     Dates: start: 20180515, end: 2018
  61. ABILIFY [Concomitant]
     Active Substance: ARIPIPRAZOLE
     Dosage: 30 MILLIGRAM, QD
     Dates: start: 20171116, end: 20180515
  62. VENLAFAXINE [Concomitant]
     Active Substance: VENLAFAXINE HYDROCHLORIDE
     Indication: PRODUCT USED FOR UNKNOWN INDICATION
     Dosage: 75 MILLIGRAM, QD
     Dates: start: 201303
  63. LEVOZIN                            /00038602/ [Concomitant]
     Active Substance: LEVOMEPROMAZINE MALEATE
     Dosage: 100 MILLIGRAM
     Dates: start: 2017

REACTIONS (19)
  - Antipsychotic drug level above therapeutic [Recovered/Resolved]
  - Anxiety [Unknown]
  - Alcohol use [Unknown]
  - Infection [Unknown]
  - Leukopenia [Recovered/Resolved]
  - Intentional product misuse [Unknown]
  - Neutrophil count increased [Recovered/Resolved]
  - Endocarditis [Unknown]
  - Hallucination, auditory [Unknown]
  - Eosinophil count increased [Unknown]
  - Initial insomnia [Unknown]
  - Hepatic enzyme increased [Not Recovered/Not Resolved]
  - Blood count abnormal [Unknown]
  - Platelet count decreased [Unknown]
  - Neutropenia [Recovered/Resolved]
  - Sepsis [Unknown]
  - Basophil count increased [Unknown]
  - Haemoglobin decreased [Unknown]
  - White blood cell count increased [Recovered/Resolved]

NARRATIVE: CASE EVENT DATE: 2012
